FAERS Safety Report 9137995 (Version 1)
Quarter: 2013Q1

REPORT INFORMATION
  Report Type: Other
  Country: FR (occurrence: FR)
  Receive Date: 20130304
  Receipt Date: 20130304
  Transmission Date: 20140127
  Serious: Yes (Other)
  Sender: FDA-Public Use
  Company Number: FR-WATSON-2013-03536

PATIENT
  Age: 42 Year
  Sex: Female

DRUGS (1)
  1. CARBOPLATIN (WATSON LABORATORIES) [Suspect]
     Indication: BREAST CANCER
     Dosage: 170 MG, UNKNOWN
     Route: 042
     Dates: start: 20100816, end: 20100816

REACTIONS (3)
  - Dyspnoea [Recovering/Resolving]
  - Flushing [Recovering/Resolving]
  - Abdominal pain [Recovering/Resolving]
